FAERS Safety Report 22005797 (Version 1)
Quarter: 2023Q1

REPORT INFORMATION
  Report Type: Spontaneous
  Country: US (occurrence: None)
  Receive Date: 20230215
  Receipt Date: 20230215
  Transmission Date: 20230418
  Serious: Yes (Other)
  Sender: FDA-Public Use
  Company Number: None

PATIENT
  Age: 52 Year
  Sex: Female
  Weight: 127.00 kg

DRUGS (31)
  1. VYXEOS [Suspect]
     Active Substance: CYTARABINE\DAUNORUBICIN
     Indication: Acute myeloid leukaemia refractory
     Dosage: OTHER FREQUENCY : DAYS 1. 3. AND 5;?
     Route: 042
     Dates: start: 20230120, end: 20230124
  2. ACETAMINOPHEN [Concomitant]
     Active Substance: ACETAMINOPHEN
  3. ACYCLOVIR [Concomitant]
     Active Substance: ACYCLOVIR
  4. Ampho B liposomal (Ambisome) [Concomitant]
  5. BENZONATATE [Concomitant]
     Active Substance: BENZONATATE
  6. Cepacol lozenge [Concomitant]
  7. CIPROFLOXACIN [Concomitant]
     Active Substance: CIPROFLOXACIN
  8. Dextromethorphan ER oral susp [Concomitant]
  9. DIPHENHYDRAMINE [Concomitant]
     Active Substance: DIPHENHYDRAMINE
  10. FAMOTIDINE [Concomitant]
     Active Substance: FAMOTIDINE
  11. DEXTROMETHORPHAN HYDROBROMIDE\GUAIFENESIN [Concomitant]
     Active Substance: DEXTROMETHORPHAN HYDROBROMIDE\GUAIFENESIN
  12. HYCODAN [Concomitant]
     Active Substance: HOMATROPINE METHYLBROMIDE\HYDROCODONE BITARTRATE
  13. HYDROCORTISONE [Concomitant]
     Active Substance: HYDROCORTISONE
  14. Lidocaine 4% [Concomitant]
  15. Lidocaine mouthwash 0.7% [Concomitant]
  16. Lidocaine viscous 2% [Concomitant]
  17. Lidocaine-Remove Patch Task [Concomitant]
  18. Lip petroleum [Concomitant]
  19. Loperadmide [Concomitant]
  20. METHYLPREDNISOLONE SODIUM SUCCINATE [Concomitant]
     Active Substance: METHYLPREDNISOLONE SODIUM SUCCINATE
  21. METOPROLOL [Concomitant]
     Active Substance: METOPROLOL
  22. MICONAZOLE [Concomitant]
     Active Substance: MICONAZOLE
  23. MORPHINE [Concomitant]
     Active Substance: MORPHINE
  24. ONDANSETRON [Concomitant]
     Active Substance: ONDANSETRON
  25. PEPPERMINT OIL [Concomitant]
     Active Substance: PEPPERMINT OIL
  26. Potassium chl (K-Tab) ER [Concomitant]
  27. PROCHLORPERAZINE [Concomitant]
     Active Substance: PROCHLORPERAZINE
  28. SACUBITRIL\VALSARTAN [Concomitant]
     Active Substance: SACUBITRIL\VALSARTAN
  29. SODIUM CHLORIDE [Concomitant]
     Active Substance: SODIUM CHLORIDE
  30. TRAMADOL [Concomitant]
     Active Substance: TRAMADOL
  31. URSODIOL [Concomitant]
     Active Substance: URSODIOL

REACTIONS (2)
  - Pericardial effusion [None]
  - Ejection fraction decreased [None]

NARRATIVE: CASE EVENT DATE: 20230213
